FAERS Safety Report 26137131 (Version 1)
Quarter: 2025Q4

REPORT INFORMATION
  Report Type: Spontaneous
  Country: EU (occurrence: EU)
  Receive Date: 20251209
  Receipt Date: 20251209
  Transmission Date: 20260118
  Serious: Yes (Other)
  Sender: MYLAN
  Company Number: EU-Desitin-2025-02842

PATIENT
  Age: 31 Year
  Sex: Male

DRUGS (40)
  1. LEVETIRACETAM [Suspect]
     Active Substance: LEVETIRACETAM
     Indication: Tonic convulsion
     Dosage: 1000 MILLIGRAM, QD
     Dates: start: 2020, end: 2021
  2. LEVETIRACETAM [Suspect]
     Active Substance: LEVETIRACETAM
     Indication: Epilepsy
     Dosage: 1000 MILLIGRAM, QD
     Dates: start: 2020, end: 2021
  3. LEVETIRACETAM [Suspect]
     Active Substance: LEVETIRACETAM
     Indication: Generalised tonic-clonic seizure
     Dosage: 1000 MILLIGRAM, QD
     Route: 065
     Dates: start: 2020, end: 2021
  4. LEVETIRACETAM [Suspect]
     Active Substance: LEVETIRACETAM
     Dosage: 1000 MILLIGRAM, QD
     Route: 065
     Dates: start: 2020, end: 2021
  5. LEVETIRACETAM [Suspect]
     Active Substance: LEVETIRACETAM
     Dosage: 250 MILLIGRAM, BID
  6. LEVETIRACETAM [Suspect]
     Active Substance: LEVETIRACETAM
     Dosage: 250 MILLIGRAM, BID
  7. LEVETIRACETAM [Suspect]
     Active Substance: LEVETIRACETAM
     Dosage: 250 MILLIGRAM, BID
     Route: 065
  8. LEVETIRACETAM [Suspect]
     Active Substance: LEVETIRACETAM
     Dosage: 250 MILLIGRAM, BID
     Route: 065
  9. LAMOTRIGINE [Suspect]
     Active Substance: LAMOTRIGINE
     Indication: Epilepsy
     Dosage: 75 MILLIGRAM, BID (1-0-1)
  10. LAMOTRIGINE [Suspect]
     Active Substance: LAMOTRIGINE
     Dosage: 75 MILLIGRAM, BID (1-0-1)
  11. LAMOTRIGINE [Suspect]
     Active Substance: LAMOTRIGINE
     Dosage: 75 MILLIGRAM, BID (1-0-1)
     Route: 065
  12. LAMOTRIGINE [Suspect]
     Active Substance: LAMOTRIGINE
     Dosage: 75 MILLIGRAM, BID (1-0-1)
     Route: 065
  13. LAMOTRIGINE [Suspect]
     Active Substance: LAMOTRIGINE
     Dosage: 12.5 MILLIGRAM, QD
  14. LAMOTRIGINE [Suspect]
     Active Substance: LAMOTRIGINE
     Dosage: 12.5 MILLIGRAM, QD
  15. LAMOTRIGINE [Suspect]
     Active Substance: LAMOTRIGINE
     Dosage: 12.5 MILLIGRAM, QD
     Route: 065
  16. LAMOTRIGINE [Suspect]
     Active Substance: LAMOTRIGINE
     Dosage: 12.5 MILLIGRAM, QD
     Route: 065
  17. LAMOTRIGINE [Suspect]
     Active Substance: LAMOTRIGINE
     Dosage: 100 MILLIGRAM, QD
  18. LAMOTRIGINE [Suspect]
     Active Substance: LAMOTRIGINE
     Dosage: 100 MILLIGRAM, QD
     Route: 065
  19. LAMOTRIGINE [Suspect]
     Active Substance: LAMOTRIGINE
     Dosage: 100 MILLIGRAM, QD
  20. LAMOTRIGINE [Suspect]
     Active Substance: LAMOTRIGINE
     Dosage: 100 MILLIGRAM, QD
     Route: 065
  21. VALPROATE [Suspect]
     Active Substance: VALPROIC ACID
     Indication: Epilepsy
     Dosage: 2000 MILLIGRAM, QD
  22. VALPROATE [Suspect]
     Active Substance: VALPROIC ACID
     Indication: Generalised tonic-clonic seizure
     Dosage: 2000 MILLIGRAM, QD
     Route: 065
  23. VALPROATE [Suspect]
     Active Substance: VALPROIC ACID
     Indication: Tonic convulsion
     Dosage: 2000 MILLIGRAM, QD
     Route: 065
  24. VALPROATE [Suspect]
     Active Substance: VALPROIC ACID
     Dosage: 2000 MILLIGRAM, QD
  25. BRIVARACETAM [Suspect]
     Active Substance: BRIVARACETAM
     Indication: Tonic convulsion
     Dosage: 150 MILLIGRAM, QD (50-0-100MG)
     Dates: start: 202503
  26. BRIVARACETAM [Suspect]
     Active Substance: BRIVARACETAM
     Indication: Generalised tonic-clonic seizure
     Dosage: 150 MILLIGRAM, QD (50-0-100MG)
     Dates: start: 202503
  27. BRIVARACETAM [Suspect]
     Active Substance: BRIVARACETAM
     Indication: Epilepsy
     Dosage: 150 MILLIGRAM, QD (50-0-100MG)
     Route: 065
     Dates: start: 202503
  28. BRIVARACETAM [Suspect]
     Active Substance: BRIVARACETAM
     Dosage: 150 MILLIGRAM, QD (50-0-100MG)
     Route: 065
     Dates: start: 202503
  29. BRIVARACETAM [Suspect]
     Active Substance: BRIVARACETAM
     Dosage: 100 MILLIGRAM, QD (AS A RESULT OF IRRITABILITY, MEDICATION MALCOMPLIANCE OCCURRED)
  30. BRIVARACETAM [Suspect]
     Active Substance: BRIVARACETAM
     Dosage: 100 MILLIGRAM, QD (AS A RESULT OF IRRITABILITY, MEDICATION MALCOMPLIANCE OCCURRED)
  31. BRIVARACETAM [Suspect]
     Active Substance: BRIVARACETAM
     Dosage: 100 MILLIGRAM, QD (AS A RESULT OF IRRITABILITY, MEDICATION MALCOMPLIANCE OCCURRED)
     Route: 065
  32. BRIVARACETAM [Suspect]
     Active Substance: BRIVARACETAM
     Dosage: 100 MILLIGRAM, QD (AS A RESULT OF IRRITABILITY, MEDICATION MALCOMPLIANCE OCCURRED)
     Route: 065
  33. TRESIBA [Concomitant]
     Active Substance: INSULIN DEGLUDEC
     Indication: Type 1 diabetes mellitus
     Dosage: 20-24 IE IN THE MORNING
  34. TRESIBA [Concomitant]
     Active Substance: INSULIN DEGLUDEC
     Dosage: 20-24 IE IN THE MORNING
     Route: 065
  35. TRESIBA [Concomitant]
     Active Substance: INSULIN DEGLUDEC
     Dosage: 20-24 IE IN THE MORNING
     Route: 065
  36. TRESIBA [Concomitant]
     Active Substance: INSULIN DEGLUDEC
     Dosage: 20-24 IE IN THE MORNING
  37. NOVORAPID [Concomitant]
     Active Substance: INSULIN ASPART
     Indication: Type 1 diabetes mellitus
     Dosage: ACCORDING TO SCHEDULE
  38. NOVORAPID [Concomitant]
     Active Substance: INSULIN ASPART
     Dosage: ACCORDING TO SCHEDULE
     Route: 065
  39. NOVORAPID [Concomitant]
     Active Substance: INSULIN ASPART
     Dosage: ACCORDING TO SCHEDULE
     Route: 065
  40. NOVORAPID [Concomitant]
     Active Substance: INSULIN ASPART
     Dosage: ACCORDING TO SCHEDULE

REACTIONS (6)
  - Therapeutic product effect incomplete [Recovered/Resolved]
  - Irritability [Recovered/Resolved]
  - Rash [Unknown]
  - Impulsive behaviour [Unknown]
  - Condition aggravated [Unknown]
  - Treatment noncompliance [Unknown]
